FAERS Safety Report 5709283-9 (Version None)
Quarter: 2008Q2

REPORT INFORMATION
  Report Type: 
  Country: None (occurrence: None)
  Receive Date: 20080418
  Receipt Date: 20080404
  Transmission Date: 20081010
  Serious: Yes (Hospitalization)
  Sender: FDA-Public Use
  Company Number: NL-AMGEN-UK264763

PATIENT
  Sex: Male
  Weight: 85.5 kg

DRUGS (4)
  1. ARANESP [Suspect]
     Indication: MYELODYSPLASTIC SYNDROME
     Route: 058
     Dates: start: 20080104
  2. ASCAL [Concomitant]
     Route: 048
  3. OMNIC [Concomitant]
     Route: 048
  4. FOLIC ACID [Concomitant]
     Route: 048
     Dates: start: 20071122

REACTIONS (2)
  - ATRIOVENTRICULAR BLOCK COMPLETE [None]
  - CARDIAC INFECTION [None]
